FAERS Safety Report 4517835-7 (Version None)
Quarter: 2004Q4

REPORT INFORMATION
  Report Type: 
  Country: None (occurrence: None)
  Receive Date: 20041203
  Receipt Date: 20030130
  Transmission Date: 20050328
  Serious: Yes (Hospitalization, Disabling, Other)
  Sender: FDA-Public Use
  Company Number: US-MERCK-0302USA00118

PATIENT
  Age: 69 Year
  Sex: Female
  Weight: 97 kg

DRUGS (29)
  1. VIOXX [Suspect]
     Indication: OSTEOARTHRITIS
     Route: 048
     Dates: start: 20000713, end: 20010907
  2. VIOXX [Suspect]
     Route: 048
     Dates: start: 20010908, end: 20010901
  3. CARDIZEM [Concomitant]
     Indication: CARDIAC DISORDER
     Route: 065
     Dates: end: 20010201
  4. PROZAC [Concomitant]
     Indication: DEPRESSION
     Route: 065
  5. SPIRONOLACTONE [Concomitant]
     Indication: CARDIAC DISORDER
     Route: 065
  6. CALCIUM (UNSPECIFIED) [Concomitant]
     Indication: BONE DISORDER
     Route: 065
  7. TEMAZEPAM [Concomitant]
     Indication: SLEEP DISORDER THERAPY
     Route: 065
  8. NITRO [Concomitant]
     Indication: CARDIAC DISORDER
     Route: 065
  9. PRINIVIL [Concomitant]
     Route: 065
     Dates: start: 19980101
  10. ZESTRIL [Suspect]
     Route: 065
     Dates: start: 19980101, end: 20010712
  11. ZESTRIL [Suspect]
     Route: 065
     Dates: start: 20010713, end: 20020822
  12. MOTRIN [Concomitant]
     Route: 065
  13. NAPROXEN [Concomitant]
     Route: 065
  14. TYLENOL (CAPLET) [Concomitant]
     Route: 065
  15. ZANTAC [Concomitant]
     Route: 065
     Dates: end: 20010124
  16. PLAVIX [Concomitant]
     Route: 065
  17. GLUCOTROL [Concomitant]
     Route: 065
  18. ZOCOR [Concomitant]
     Route: 048
  19. MIACALCIN [Concomitant]
     Route: 065
  20. LASIX [Suspect]
     Route: 065
     Dates: start: 20010201
  21. NIACIN [Suspect]
     Route: 065
     Dates: end: 20021101
  22. LORAZEPAM [Concomitant]
     Route: 065
  23. PRILOSEC [Concomitant]
     Route: 065
  24. COREG [Concomitant]
     Route: 065
  25. ISOSORBIDE [Concomitant]
     Route: 065
  26. ASPIRIN [Concomitant]
     Route: 065
  27. POTASSIUM (UNSPECIFIED) [Concomitant]
     Route: 065
  28. CHONDROITIN SULFATE SODIUM AND GLUCOSAMINE HYDROCHLORIDE AND MANGANESE [Concomitant]
     Route: 065
  29. VITAMINS (UNSPECIFIED) [Concomitant]
     Route: 065

REACTIONS (35)
  - ANXIETY [None]
  - AORTIC ANEURYSM [None]
  - BLOOD GLUCOSE INCREASED [None]
  - CARDIAC FAILURE CONGESTIVE [None]
  - CEREBROVASCULAR ACCIDENT [None]
  - CHRONIC OBSTRUCTIVE AIRWAYS DISEASE [None]
  - CONTUSION [None]
  - CORONARY ARTERY DISEASE [None]
  - DIABETES MELLITUS INADEQUATE CONTROL [None]
  - FALL [None]
  - FUNGAL SKIN INFECTION [None]
  - GASTROENTERITIS [None]
  - GASTROINTESTINAL INFECTION [None]
  - HYPERPARATHYROIDISM SECONDARY [None]
  - INJURY [None]
  - INSOMNIA [None]
  - ISCHAEMIC CARDIOMYOPATHY [None]
  - MENIERE'S DISEASE [None]
  - MITRAL VALVE INCOMPETENCE [None]
  - MYALGIA [None]
  - NERVE COMPRESSION [None]
  - OSTEOPOROSIS [None]
  - PHARYNGITIS [None]
  - PRURITUS [None]
  - RENAL FAILURE ACUTE [None]
  - RENAL FAILURE CHRONIC [None]
  - SEASONAL ALLERGY [None]
  - SILENT MYOCARDIAL INFARCTION [None]
  - SINUSITIS [None]
  - SKIN ULCER [None]
  - SPONDYLOSIS [None]
  - TRANSIENT ISCHAEMIC ATTACK [None]
  - TRICUSPID VALVE INCOMPETENCE [None]
  - URINARY TRACT INFECTION [None]
  - VENTRICULAR DYSFUNCTION [None]
